FAERS Safety Report 12356845 (Version 2)
Quarter: 2016Q2

REPORT INFORMATION
  Report Type: Spontaneous
  Country: US (occurrence: US)
  Receive Date: 20160511
  Receipt Date: 20160601
  Transmission Date: 20160815
  Serious: No
  Sender: FDA-Public Use
  Company Number: US-PFIZER INC-2016221889

PATIENT
  Age: 69 Year
  Sex: Female

DRUGS (1)
  1. GABAPENTIN. [Suspect]
     Active Substance: GABAPENTIN
     Indication: PRURITUS
     Dosage: 100 MG, UNK
     Route: 048
     Dates: start: 20151009

REACTIONS (3)
  - Product use issue [Unknown]
  - Condition aggravated [Unknown]
  - Constipation [Unknown]

NARRATIVE: CASE EVENT DATE: 20151009
